FAERS Safety Report 7369305-9 (Version None)
Quarter: 2011Q1

REPORT INFORMATION
  Report Type: 
  Country: None (occurrence: None)
  Receive Date: 20110323
  Receipt Date: 20110314
  Transmission Date: 20110831
  Serious: Yes (Hospitalization)
  Sender: FDA-Public Use
  Company Number: B0699468A

PATIENT
  Age: 50 Year
  Sex: Female
  Weight: 54.5 kg

DRUGS (8)
  1. TOPROL-XL [Concomitant]
  2. AVANDAMET [Suspect]
     Route: 048
     Dates: start: 20060101, end: 20060101
  3. PRILOSEC [Concomitant]
  4. AVAPRO [Concomitant]
  5. AMARYL [Concomitant]
  6. AVANDIA [Suspect]
     Dosage: 8MG PER DAY
     Route: 048
     Dates: start: 20020101, end: 20050101
  7. NORVASC [Concomitant]
  8. LIPITOR [Concomitant]

REACTIONS (2)
  - MYOCARDIAL INFARCTION [None]
  - CARDIAC FAILURE CONGESTIVE [None]
